FAERS Safety Report 9617283 (Version 4)
Quarter: 2014Q1

REPORT INFORMATION
  Report Type: Spontaneous
  Country: US (occurrence: US)
  Receive Date: 20131011
  Receipt Date: 20140110
  Transmission Date: 20141002
  Serious: Yes (Other)
  Sender: FDA-Public Use
  Company Number: US-AMGEN-USASP2013023273

PATIENT
  Age: 33 Year
  Sex: Female
  Weight: 71.2 kg

DRUGS (7)
  1. ENBREL [Suspect]
     Indication: JUVENILE IDIOPATHIC ARTHRITIS
     Dosage: 50 MG, QWK
     Route: 058
     Dates: start: 2008, end: 201301
  2. HYDROXYCHLOROQUINE [Concomitant]
     Dosage: 200 MG, BID
  3. PREDNISONE [Concomitant]
     Dosage: 5 MG, QD
     Dates: start: 199909
  4. FOLIC ACID [Concomitant]
     Dosage: 400 MG, QD
     Dates: start: 201009, end: 201105
  5. PRENATAL VITAMINS                  /02014401/ [Concomitant]
     Dosage: 200 MG, QD
     Dates: start: 201009, end: 201105
  6. DHA [Concomitant]
     Dosage: 200 MG, QD
  7. CALCIUM [Concomitant]
     Dosage: 250 MG, QD

REACTIONS (2)
  - Premature delivery [Unknown]
  - Premature rupture of membranes [Unknown]
